FAERS Safety Report 5724802-4 (Version None)
Quarter: 2008Q2

REPORT INFORMATION
  Report Type: 
  Country: None (occurrence: None)
  Receive Date: 20080501
  Receipt Date: 20080421
  Transmission Date: 20081010
  Serious: Yes (Hospitalization)
  Sender: FDA-Public Use
  Company Number: US-TYCO HEALTHCARE/MALLINCKRODT-T200800662

PATIENT

DRUGS (48)
  1. METHADONE HCL [Suspect]
     Dosage: 10 MG, TID
     Dates: start: 20020822, end: 20020903
  2. METHADONE HCL [Suspect]
     Dosage: 20 MG, TID
     Dates: start: 20020904, end: 20030609
  3. METHADONE HCL [Suspect]
     Dosage: 10 MG, QID
     Dates: start: 20030610, end: 20040907
  4. MORPHINE EXTENDED RELEASE [Suspect]
     Dosage: 15 MG, UNK
     Dates: start: 20041210
  5. ACTIQ [Suspect]
     Indication: BACK PAIN
     Dosage: VARIABLE DOSING (600 MCG/1200 MCG/1600 MCG)
     Route: 002
     Dates: start: 20020506, end: 20070130
  6. ACTIQ [Suspect]
     Indication: ARTHROPATHY
  7. LORCET-HD [Suspect]
     Indication: BACK PAIN
     Dosage: UNK, PRN
     Dates: start: 19991027
  8. NORCO [Suspect]
     Indication: BACK PAIN
     Dosage: PRN
     Dates: start: 20000105
  9. NORCO [Suspect]
     Dosage: 20 MG, Q4HR
     Dates: end: 20020822
  10. OXYCONTIN [Suspect]
     Indication: BACK PAIN
     Dosage: 140 MG, QD
     Dates: start: 19991027
  11. OXYCONTIN [Suspect]
     Dosage: 100 MG, QD
     Dates: end: 20020822
  12. ROXICET [Suspect]
     Dates: start: 20001109
  13. STADOL [Suspect]
     Indication: BACK PAIN
     Dosage: 10 MG/ML, UNK
     Route: 045
     Dates: start: 20011109
  14. OXYIR [Suspect]
     Dosage: 10 MG, QID
     Dates: start: 20020101, end: 20020101
  15. DURAGESIC-100 [Suspect]
     Indication: BACK PAIN
     Dosage: 75 UG, HR
     Route: 062
     Dates: start: 20040907, end: 20050224
  16. DURAGESIC-100 [Suspect]
     Dosage: 150 UG, HR
     Route: 062
     Dates: start: 20050225, end: 20050518
  17. DURAGESIC-100 [Suspect]
     Dosage: 100 UG, HR
     Route: 062
     Dates: start: 20050519, end: 20051108
  18. DURAGESIC-100 [Suspect]
     Dosage: 75 UG, HR
     Route: 062
     Dates: start: 20051109, end: 20060130
  19. DURAGESIC-100 [Suspect]
     Dosage: 100 UG, HR
     Route: 062
     Dates: start: 20060131, end: 20070202
  20. DURAGESIC-100 [Suspect]
     Dosage: 75 UG, HR
     Route: 062
     Dates: start: 20070203, end: 20070501
  21. ENDOCET [Suspect]
     Dates: start: 20060329
  22. VICODIN [Suspect]
     Dates: start: 20040507
  23. KADIAN [Suspect]
     Dosage: 100 MG, BID
     Dates: start: 20060828, end: 20070130
  24. DILAUDID [Suspect]
     Dosage: 4 MG, QID
     Dates: start: 20060213, end: 20060918
  25. DILAUDID [Suspect]
     Dosage: 4 MG, TID
     Dates: start: 20060919, end: 20070131
  26. VALIUM [Concomitant]
     Dates: start: 20000104
  27. ZANAFLEX [Concomitant]
     Dates: start: 20000105
  28. DESYREL [Concomitant]
     Dates: start: 20000117, end: 20020822
  29. DESYREL [Concomitant]
     Dates: start: 20020823
  30. DESYREL [Concomitant]
     Dates: start: 20060130
  31. ATIVAN [Concomitant]
     Dates: start: 20020411
  32. ATIVAN [Concomitant]
     Dates: end: 20070202
  33. ZOLOFT [Concomitant]
     Dates: start: 20010307
  34. ZOLOFT [Concomitant]
     Dates: start: 20011207, end: 20020822
  35. ZOLOFT [Concomitant]
     Dates: start: 20020823
  36. NEURONTIN [Concomitant]
     Dates: start: 20011109
  37. NEURONTIN [Concomitant]
     Dates: start: 20020104
  38. NEURONTIN [Concomitant]
     Dates: start: 20020822
  39. NEURONTIN [Concomitant]
     Dates: start: 20020903
  40. NEURONTIN [Concomitant]
     Dates: start: 20030609
  41. SEROQUEL [Concomitant]
     Dates: start: 20030609, end: 20040907
  42. SEROQUEL [Concomitant]
     Dates: start: 20040908, end: 20050420
  43. SEROQUEL [Concomitant]
     Dates: start: 20050421, end: 20050518
  44. SEROQUEL [Concomitant]
     Dates: start: 20050519
  45. TOPAMAX [Concomitant]
     Dates: start: 20020822, end: 20051108
  46. TOPAMAX [Concomitant]
     Dates: start: 20051109, end: 20060101
  47. WELLBUTRIN [Concomitant]
     Dosage: UNK, UNK
     Dates: start: 20050518, end: 20050525
  48. WELLBUTRIN [Concomitant]
     Dates: start: 20050526

REACTIONS (8)
  - ABNORMAL BEHAVIOUR [None]
  - DENTAL CARIES [None]
  - DEPRESSION [None]
  - DRUG ABUSE [None]
  - DRUG DEPENDENCE [None]
  - DYSARTHRIA [None]
  - PARTNER STRESS [None]
  - TOOTH ABSCESS [None]
